FAERS Safety Report 17695368 (Version 2)
Quarter: 2020Q2

REPORT INFORMATION
  Report Type: Report from Study
  Country: IE (occurrence: IE)
  Receive Date: 20200422
  Receipt Date: 20200507
  Transmission Date: 20200714
  Serious: Yes (Hospitalization, Other)
  Sender: FDA-Public Use
  Company Number: IE-BEH-2020112856

PATIENT
  Age: 64 Year
  Sex: Female
  Weight: 85.71 kg

DRUGS (7)
  1. ZEMAIRA [Suspect]
     Active Substance: .ALPHA.1-PROTEINASE INHIBITOR HUMAN
     Dosage: UNK, QW
     Route: 042
  2. ULTIBRO BREEZHALER [Concomitant]
     Active Substance: GLYCOPYRRONIUM\INDACATEROL
     Indication: LUNG DISORDER
     Dosage: 85 MICROGRAM
  3. ULTIBRO BREEZHALER [Concomitant]
     Active Substance: GLYCOPYRRONIUM\INDACATEROL
     Dosage: 43 MICROGRAM
  4. PARACETAMOL [Concomitant]
     Active Substance: ACETAMINOPHEN
     Indication: PAIN
     Dosage: UNK, PRN
     Route: 048
  5. ULTIBRO BREEZHALER [Concomitant]
     Active Substance: GLYCOPYRRONIUM\INDACATEROL
     Dosage: UNK, QD
  6. MORPHINE [Concomitant]
     Active Substance: MORPHINE
     Indication: PAIN
     Route: 065
  7. ZEMAIRA [Suspect]
     Active Substance: .ALPHA.1-PROTEINASE INHIBITOR HUMAN
     Indication: ALPHA-1 ANTITRYPSIN DEFICIENCY
     Dosage: 5142 MILLIGRAM 102.8 MLS, QW
     Route: 042
     Dates: start: 2006, end: 2010

REACTIONS (8)
  - Nausea [Recovered/Resolved]
  - Vomiting [Unknown]
  - Body temperature increased [Recovered/Resolved]
  - Facial paralysis [Recovered/Resolved]
  - Blood pressure increased [Recovered/Resolved]
  - Impaired healing [Recovering/Resolving]
  - Muscle twitching [Recovered/Resolved]
  - Ovarian cyst [Recovering/Resolving]

NARRATIVE: CASE EVENT DATE: 2009
